FAERS Safety Report 22046601 (Version 1)
Quarter: 2023Q1

REPORT INFORMATION
  Report Type: Spontaneous
  Country: US (occurrence: US)
  Receive Date: 20230228
  Receipt Date: 20230228
  Transmission Date: 20230418
  Serious: Yes (Death)
  Sender: FDA-Public Use
  Company Number: US-NOVOPROD-1025752

PATIENT
  Age: 65 Year
  Sex: Male

DRUGS (2)
  1. NOVOLOG [Suspect]
     Active Substance: INSULIN ASPART
     Indication: Diabetes mellitus
     Dosage: UNK
     Route: 058
  2. BYETTA [Concomitant]
     Active Substance: EXENATIDE
     Indication: Product used for unknown indication
     Dosage: UNK

REACTIONS (3)
  - Oesophageal carcinoma [Fatal]
  - Renal disorder [Unknown]
  - Diabetes mellitus inadequate control [Unknown]

NARRATIVE: CASE EVENT DATE: 20180101
